FAERS Safety Report 9645176 (Version 1)
Quarter: 2013Q4

REPORT INFORMATION
  Report Type: Report from Study
  Country: FR (occurrence: FR)
  Receive Date: 20131025
  Receipt Date: 20131025
  Transmission Date: 20140711
  Serious: Yes (Hospitalization, Other)
  Sender: FDA-Public Use
  Company Number: FR-ASTELLAS-2013EU009037

PATIENT
  Age: 76 Year
  Sex: Male

DRUGS (2)
  1. ENZALUTAMIDE [Suspect]
     Indication: PROSTATE CANCER
     Dosage: 160 MG, UNKNOWN/D
     Route: 048
     Dates: start: 20130614
  2. ENANTONE                           /00726901/ [Concomitant]
     Indication: PROSTATE CANCER
     Dosage: 11.25 G, OTHER
     Route: 058
     Dates: start: 200810

REACTIONS (5)
  - General physical health deterioration [Recovered/Resolved]
  - Dehydration [Recovered/Resolved]
  - Hyperaesthesia [Recovered/Resolved]
  - Anaemia [Unknown]
  - Asthenia [Recovered/Resolved]
